FAERS Safety Report 17872124 (Version 2)
Quarter: 2020Q2

REPORT INFORMATION
  Report Type: Spontaneous
  Country: US (occurrence: US)
  Receive Date: 20200608
  Receipt Date: 20200609
  Transmission Date: 20200714
  Serious: No
  Sender: FDA-Public Use
  Company Number: NVSC2020US158087

PATIENT
  Sex: Female

DRUGS (1)
  1. COSENTYX [Suspect]
     Active Substance: SECUKINUMAB
     Indication: PRODUCT USED FOR UNKNOWN INDICATION
     Dosage: 300 MG, QMO
     Route: 065
     Dates: start: 202002

REACTIONS (6)
  - Needle issue [Unknown]
  - Device malfunction [Unknown]
  - Injection site injury [Recovered/Resolved]
  - Wrong technique in device usage process [Unknown]
  - Product administration error [Unknown]
  - Incorrect dose administered by device [Unknown]
